FAERS Safety Report 17173614 (Version 6)
Quarter: 2020Q4

REPORT INFORMATION
  Report Type: Spontaneous
  Country: US (occurrence: US)
  Receive Date: 20191219
  Receipt Date: 20201008
  Transmission Date: 20210113
  Serious: No
  Sender: FDA-Public Use
  Company Number: US-VERTEX PHARMACEUTICALS-2019-012724

PATIENT
  Age: 16 Year
  Sex: Male
  Weight: 49 kg

DRUGS (8)
  1. TRIKAFTA [Suspect]
     Active Substance: ELEXACAFTOR\IVACAFTOR\TEZACAFTOR
     Indication: CYSTIC FIBROSIS
     Dosage: 2 TABLETS(100 MG ELEXACAFTOR/ 50 MG TEZACAFTOR/ 75 MG IVACAFTOR) AM; 1 TABLET (150 MG IVACAFTOR) PM
     Route: 048
     Dates: start: 20191130, end: 201912
  2. TOBI [Concomitant]
     Active Substance: TOBRAMYCIN
  3. BREO ELLIPTA [Concomitant]
     Active Substance: FLUTICASONE FUROATE\VILANTEROL TRIFENATATE
  4. XOPENEX [Concomitant]
     Active Substance: LEVALBUTEROL HYDROCHLORIDE
  5. TRIKAFTA [Suspect]
     Active Substance: ELEXACAFTOR\IVACAFTOR\TEZACAFTOR
     Dosage: UNK
     Route: 048
     Dates: start: 202001, end: 20200206
  6. PERTZYE [Concomitant]
     Active Substance: PANCRELIPASE AMYLASE\PANCRELIPASE LIPASE\PANCRELIPASE PROTEASE
  7. PULMOZYME [Concomitant]
     Active Substance: DORNASE ALFA
  8. SODIUM CHLORIDE. [Concomitant]
     Active Substance: SODIUM CHLORIDE

REACTIONS (5)
  - Headache [Unknown]
  - Mood swings [Not Recovered/Not Resolved]
  - Abdominal pain [Recovered/Resolved]
  - Epistaxis [Recovered/Resolved]
  - Jaundice [Unknown]

NARRATIVE: CASE EVENT DATE: 20191202
